FAERS Safety Report 24679034 (Version 2)
Quarter: 2025Q2

REPORT INFORMATION
  Report Type: Report from Study
  Country: CA (occurrence: CA)
  Receive Date: 20241129
  Receipt Date: 20250526
  Transmission Date: 20250716
  Serious: Yes (Hospitalization, Other)
  Sender: TAKEDA
  Company Number: CA-TAKEDA-2024TUS118694

PATIENT

DRUGS (1)
  1. VEDOLIZUMAB [Suspect]
     Active Substance: VEDOLIZUMAB
     Indication: Crohn^s disease
     Dosage: 300 MILLIGRAM, Q4WEEKS
     Route: 064

REACTIONS (4)
  - Hypoglycaemia neonatal [Recovering/Resolving]
  - Foetal heart rate deceleration abnormality [Recovering/Resolving]
  - Jaundice neonatal [Recovering/Resolving]
  - Foetal exposure during pregnancy [Unknown]
